FAERS Safety Report 18346071 (Version 1)
Quarter: 2020Q4

REPORT INFORMATION
  Report Type: Spontaneous
  Country: US (occurrence: US)
  Receive Date: 20201005
  Receipt Date: 20201005
  Transmission Date: 20210114
  Serious: No
  Sender: FDA-Public Use
  Company Number: US-JAZZ-2020-US-004479

PATIENT
  Age: 26 Year
  Sex: Female

DRUGS (4)
  1. XYREM [Concomitant]
     Active Substance: SODIUM OXYBATE
     Dosage: DOSE ADJUSTMENT
  2. XYREM [Concomitant]
     Active Substance: SODIUM OXYBATE
     Indication: NARCOLEPSY
     Dosage: 2.5 MILLIGRAM, BID
     Route: 048
  3. XYREM [Concomitant]
     Active Substance: SODIUM OXYBATE
     Dosage: 3.6 MILLIGRAM, BID
     Route: 048
  4. SUNOSI [Suspect]
     Active Substance: SOLRIAMFETOL
     Indication: NARCOLEPSY
     Dosage: 150 MILLIGRAM, QD
     Route: 048
     Dates: start: 20200221, end: 20200227

REACTIONS (2)
  - Nausea [Recovered/Resolved]
  - Drug ineffective [Recovered/Resolved]

NARRATIVE: CASE EVENT DATE: 202002
